FAERS Safety Report 20393766 (Version 1)
Quarter: 2022Q1

REPORT INFORMATION
  Report Type: Spontaneous
  Country: US (occurrence: US)
  Receive Date: 20220128
  Receipt Date: 20220128
  Transmission Date: 20220423
  Serious: Yes (Hospitalization, Other)
  Sender: FDA-Public Use
  Company Number: US-Indicus Pharma-000823

PATIENT
  Age: 39 Year
  Sex: Male

DRUGS (2)
  1. METFORMIN [Suspect]
     Active Substance: METFORMIN HYDROCHLORIDE
  2. TRAZODONE [Suspect]
     Active Substance: TRAZODONE HYDROCHLORIDE

REACTIONS (9)
  - Hyperkalaemia [Unknown]
  - Intentional overdose [Unknown]
  - Suicide attempt [Unknown]
  - Lactic acidosis [Recovered/Resolved]
  - Distributive shock [Recovered/Resolved]
  - Toxicity to various agents [Unknown]
  - Hypoglycaemia [Unknown]
  - Hypotension [Unknown]
  - Mental status changes [Recovered/Resolved]
